FAERS Safety Report 9362959 (Version 1)
Quarter: 2013Q2

REPORT INFORMATION
  Report Type: Spontaneous
  Country: US (occurrence: None)
  Receive Date: 20130621
  Receipt Date: 20130621
  Transmission Date: 20140414
  Serious: No
  Sender: FDA-Public Use
  Company Number: None

PATIENT
  Age: 55 Year
  Sex: Female
  Weight: 106.6 kg

DRUGS (2)
  1. CARBOPLATIN [Suspect]
     Dosage: 6/20/1  200MG, EVERY W USS
     Dates: start: 20130607
  2. CARBOPLATIN [Suspect]
     Dosage: 6/20/1  200MG, EVERY W USS
     Dates: start: 20130607

REACTIONS (7)
  - Infusion related reaction [None]
  - Paraesthesia [None]
  - Ear pruritus [None]
  - Eye pruritus [None]
  - Nasal discomfort [None]
  - Throat irritation [None]
  - Flushing [None]
